FAERS Safety Report 16133668 (Version 1)
Quarter: 2019Q1

REPORT INFORMATION
  Report Type: Spontaneous
  Country: GB (occurrence: GB)
  Receive Date: 20190329
  Receipt Date: 20190329
  Transmission Date: 20190418
  Serious: Yes (Hospitalization, Other)
  Sender: FDA-Public Use
  Company Number: GB-ACCORD-115767

PATIENT
  Age: 44 Year
  Sex: Male
  Weight: 58.5 kg

DRUGS (6)
  1. LANSOPRAZOLE. [Concomitant]
     Active Substance: LANSOPRAZOLE
  2. LEVETIRACETAM. [Suspect]
     Active Substance: LEVETIRACETAM
     Indication: EPILEPSY
     Route: 048
     Dates: start: 20150423
  3. PARACETAMOL [Concomitant]
     Active Substance: ACETAMINOPHEN
  4. AMOXICILLIN. [Concomitant]
     Active Substance: AMOXICILLIN
     Dosage: ACUTELY
  5. LACTULOSE. [Concomitant]
     Active Substance: LACTULOSE
  6. SENNA ALEXANDRINA [Concomitant]
     Active Substance: SENNA LEAF

REACTIONS (2)
  - Neutropenia [Not Recovered/Not Resolved]
  - Neutropenic sepsis [Unknown]

NARRATIVE: CASE EVENT DATE: 20180517
